FAERS Safety Report 19468505 (Version 1)
Quarter: 2021Q2

REPORT INFORMATION
  Report Type: Spontaneous
  Country: ES (occurrence: ES)
  Receive Date: 20210628
  Receipt Date: 20210628
  Transmission Date: 20210717
  Serious: Yes (Other)
  Sender: FDA-Public Use
  Company Number: ES-SAMSUNG BIOEPIS-SB-2021-15343

PATIENT
  Age: 50 Year
  Sex: Male

DRUGS (2)
  1. IMRALDI [Suspect]
     Active Substance: ADALIMUMAB
     Indication: JUVENILE PSORIATIC ARTHRITIS
     Route: 058
     Dates: start: 20201116, end: 20210524
  2. IMRALDI [Suspect]
     Active Substance: ADALIMUMAB
     Dosage: IMRALDI 40 MG INJECTABLE SOLUTION IN PRE?FILLED PEN, 2 PRE?FILLED PENS OF 0.8 ML
     Route: 065

REACTIONS (3)
  - Exfoliative rash [Not Recovered/Not Resolved]
  - Product use in unapproved indication [Unknown]
  - Paradoxical psoriasis [Not Recovered/Not Resolved]

NARRATIVE: CASE EVENT DATE: 20210401
